FAERS Safety Report 5757727-9 (Version None)
Quarter: 2008Q2

REPORT INFORMATION
  Report Type: 
  Country: None (occurrence: None)
  Receive Date: 20080603
  Receipt Date: 20080520
  Transmission Date: 20081010
  Serious: Yes (Hospitalization)
  Sender: FDA-Public Use
  Company Number: US-BAYER-200811874LA

PATIENT
  Age: 40 Year
  Sex: Female

DRUGS (9)
  1. DACARBAZINE [Suspect]
     Indication: MALIGNANT MELANOMA
     Route: 042
     Dates: start: 20071217, end: 20080128
  2. IPILIMUMAB OR PLACEBO (NON-BAYER DRUG) [Suspect]
     Indication: MALIGNANT MELANOMA
     Route: 042
     Dates: start: 20071217, end: 20080128
  3. SODIUM CHLORIDE [Concomitant]
     Indication: DRUG USE FOR UNKNOWN INDICATION
     Route: 065
     Dates: start: 20080216
  4. ONDANSETRON [Concomitant]
     Indication: DRUG USE FOR UNKNOWN INDICATION
     Route: 065
     Dates: start: 20080216, end: 20080217
  5. ONDANSETRON [Concomitant]
     Route: 065
     Dates: start: 20071224
  6. LOPERAMIDE HCL [Concomitant]
     Indication: COLITIS
     Route: 065
     Dates: start: 20080216, end: 20080217
  7. OMEPRAZOLE [Concomitant]
     Indication: DRUG USE FOR UNKNOWN INDICATION
     Route: 065
     Dates: start: 20071126
  8. BROMAZEPAM [Concomitant]
     Indication: DRUG USE FOR UNKNOWN INDICATION
     Route: 065
     Dates: start: 20071206
  9. ALPRAZOLAM [Concomitant]
     Indication: DRUG USE FOR UNKNOWN INDICATION
     Route: 065
     Dates: start: 20071126

REACTIONS (2)
  - COLITIS [None]
  - HAEMATOCHEZIA [None]
